FAERS Safety Report 20681672 (Version 3)
Quarter: 2022Q3

REPORT INFORMATION
  Report Type: Spontaneous
  Country: JP (occurrence: JP)
  Receive Date: 20220406
  Receipt Date: 20220630
  Transmission Date: 20221027
  Serious: Yes (Other)
  Sender: FDA-Public Use
  Company Number: JP-NOVARTISPH-NVSJ2022JP002468

PATIENT
  Age: 78 Year
  Sex: Female

DRUGS (1)
  1. BEOVU [Suspect]
     Active Substance: BROLUCIZUMAB-DBLL
     Indication: Age-related macular degeneration
     Dosage: 6 MG
     Route: 031
     Dates: start: 20220111, end: 20220111

REACTIONS (3)
  - Polypoidal choroidal vasculopathy [Recovered/Resolved]
  - Iritis [Recovered/Resolved]
  - Anterior chamber cell [Recovering/Resolving]

NARRATIVE: CASE EVENT DATE: 20220201
